FAERS Safety Report 4420958-4 (Version None)
Quarter: 2004Q3

REPORT INFORMATION
  Report Type: 
  Country: None (occurrence: None)
  Receive Date: 20040809
  Receipt Date: 20040723
  Transmission Date: 20050211
  Serious: Yes (Other)
  Sender: FDA-Public Use
  Company Number: JP-MERCK-0407USA02545

PATIENT
  Age: 68 Year
  Sex: Female

DRUGS (7)
  1. [THERAPY UNSPECIFIED] [Suspect]
     Indication: FATIGUE
     Route: 048
     Dates: start: 19980411, end: 20040220
  2. [THERAPY UNSPECIFIED] [Concomitant]
     Indication: ABDOMINAL PAIN
     Route: 048
     Dates: start: 20040109, end: 20040225
  3. FOSAMAX [Suspect]
     Indication: OSTEOPOROSIS
     Route: 048
     Dates: start: 20031108, end: 20040220
  4. ONEALFA [Concomitant]
     Indication: OSTEOPOROSIS
     Route: 048
     Dates: start: 20001010, end: 20040220
  5. KAMI-SHOYO-SAN [Suspect]
     Indication: FATIGUE
     Route: 048
     Dates: start: 20020526, end: 20040220
  6. ASPARA [Concomitant]
     Indication: OSTEOPOROSIS
     Route: 048
     Dates: start: 20001010, end: 20040220
  7. MENATETRENONE [Concomitant]
     Indication: OSTEOPOROSIS
     Route: 048
     Dates: start: 20001010, end: 20040220

REACTIONS (7)
  - ABDOMINAL DISTENSION [None]
  - ALANINE AMINOTRANSFERASE INCREASED [None]
  - ASPARTATE AMINOTRANSFERASE INCREASED [None]
  - BLOOD ALKALINE PHOSPHATASE INCREASED [None]
  - BLOOD LACTATE DEHYDROGENASE INCREASED [None]
  - GAMMA-GLUTAMYLTRANSFERASE INCREASED [None]
  - HEPATIC FUNCTION ABNORMAL [None]
